FAERS Safety Report 25905594 (Version 2)
Quarter: 2025Q4

REPORT INFORMATION
  Report Type: Report from Study
  Country: CN (occurrence: CN)
  Receive Date: 20251010
  Receipt Date: 20251017
  Transmission Date: 20260117
  Serious: Yes (Other)
  Sender: ROCHE
  Company Number: CN-ROCHE-10000376798

PATIENT
  Age: 72 Year
  Sex: Male
  Weight: 53.4 kg

DRUGS (49)
  1. POLATUZUMAB VEDOTIN [Suspect]
     Active Substance: POLATUZUMAB VEDOTIN
     Indication: Diffuse large B-cell lymphoma
     Route: 042
     Dates: start: 20240905, end: 20240905
  2. POLATUZUMAB VEDOTIN [Suspect]
     Active Substance: POLATUZUMAB VEDOTIN
     Route: 042
     Dates: start: 20240930, end: 20240930
  3. POLATUZUMAB VEDOTIN [Suspect]
     Active Substance: POLATUZUMAB VEDOTIN
     Route: 042
     Dates: start: 20241021, end: 20241021
  4. RITUXIMAB [Suspect]
     Active Substance: RITUXIMAB
     Indication: Diffuse large B-cell lymphoma
     Route: 042
     Dates: start: 20240903, end: 20240903
  5. RITUXIMAB [Suspect]
     Active Substance: RITUXIMAB
     Route: 042
     Dates: start: 20240904, end: 20240904
  6. RITUXIMAB [Suspect]
     Active Substance: RITUXIMAB
     Route: 042
     Dates: start: 20240929, end: 20240929
  7. RITUXIMAB [Suspect]
     Active Substance: RITUXIMAB
     Route: 042
     Dates: start: 20241020, end: 20241020
  8. CYCLOPHOSPHAMIDE [Suspect]
     Active Substance: CYCLOPHOSPHAMIDE
     Indication: Diffuse large B-cell lymphoma
     Route: 042
     Dates: start: 20240906, end: 20240906
  9. CYCLOPHOSPHAMIDE [Suspect]
     Active Substance: CYCLOPHOSPHAMIDE
     Route: 042
     Dates: start: 20240929, end: 20240929
  10. CYCLOPHOSPHAMIDE [Suspect]
     Active Substance: CYCLOPHOSPHAMIDE
     Route: 042
     Dates: start: 20241021, end: 20241021
  11. ETOPOSIDE [Suspect]
     Active Substance: ETOPOSIDE
     Indication: Diffuse large B-cell lymphoma
     Route: 042
     Dates: start: 20240905, end: 20240905
  12. ETOPOSIDE [Suspect]
     Active Substance: ETOPOSIDE
     Route: 042
     Dates: start: 20240907, end: 20240907
  13. ETOPOSIDE [Suspect]
     Active Substance: ETOPOSIDE
     Route: 042
     Dates: start: 20240930, end: 20241002
  14. ETOPOSIDE [Suspect]
     Active Substance: ETOPOSIDE
     Route: 042
     Dates: start: 20241021, end: 20241023
  15. DEXAMETHASONE [Suspect]
     Active Substance: DEXAMETHASONE
     Indication: Diffuse large B-cell lymphoma
     Route: 042
     Dates: start: 20240903, end: 20240907
  16. TUCIDINOSTAT [Suspect]
     Active Substance: TUCIDINOSTAT
     Indication: Diffuse large B-cell lymphoma
     Route: 048
     Dates: start: 20240929, end: 20241006
  17. TUCIDINOSTAT [Suspect]
     Active Substance: TUCIDINOSTAT
     Route: 048
     Dates: start: 20241020, end: 20241117
  18. METHOTREXATE [Suspect]
     Active Substance: METHOTREXATE
     Indication: Diffuse large B-cell lymphoma
     Route: 042
     Dates: start: 20241001, end: 20241001
  19. PREDNISONE [Suspect]
     Active Substance: PREDNISONE
     Indication: Diffuse large B-cell lymphoma
     Route: 048
     Dates: start: 20240930, end: 20241004
  20. PREDNISONE [Suspect]
     Active Substance: PREDNISONE
     Route: 048
     Dates: start: 20241021, end: 20241025
  21. SULPERAZONE [Concomitant]
     Active Substance: CEFOPERAZONE SODIUM\SULBACTAM SODIUM
  22. DIFLUCAN [Concomitant]
     Active Substance: FLUCONAZOLE
  23. SULFAMETHOXAZOLE [Concomitant]
     Active Substance: SULFAMETHOXAZOLE
  24. Bicyclic alcohol tablets [Concomitant]
  25. METHYLPREDNISOLONE SODIUM SUCCINATE [Concomitant]
     Active Substance: METHYLPREDNISOLONE SODIUM SUCCINATE
  26. Omeprazole enteric-coated capsules [Concomitant]
  27. Calcitriol softgel capsules [Concomitant]
  28. Ursodeoxycholic acid capsules [Concomitant]
  29. Diammonium glycyrrhizinate enteric capsule [Concomitant]
  30. POSACONAZOLE [Concomitant]
     Active Substance: POSACONAZOLE
  31. VINCRISTINE SULFATE [Concomitant]
     Active Substance: VINCRISTINE SULFATE
  32. Compound acetaminophen tablets [Concomitant]
  33. PROMETHAZINE [Concomitant]
     Active Substance: PROMETHAZINE HYDROCHLORIDE
  34. Ondansetron hydrochloride injection [Concomitant]
  35. LEUCOVORIN CALCIUM [Concomitant]
     Active Substance: LEUCOVORIN CALCIUM
  36. Potassium chloride sustained-release tablets [Concomitant]
  37. CYTARABINE HYDROCHLORIDE [Concomitant]
     Active Substance: CYTARABINE HYDROCHLORIDE
  38. DEXAMETHASONE SODIUM PHOSPHATE [Concomitant]
     Active Substance: DEXAMETHASONE SODIUM PHOSPHATE
  39. LEUCOGEN [Concomitant]
     Active Substance: LEUCOGEN
  40. Cefprozil dispersible tablets [Concomitant]
  41. Pegylated recombinant human granulocyte stimulating factor injection [Concomitant]
  42. Amifostine for injection [Concomitant]
  43. Sodium lactate Ringer injection [Concomitant]
  44. SODIUM BICARBONATE [Concomitant]
     Active Substance: SODIUM BICARBONATE
  45. Reduced glutathione for injection [Concomitant]
  46. HEPARIN SODIUM [Concomitant]
     Active Substance: HEPARIN SODIUM
  47. ENEMA (SODIUM PHOSPHATE, DIBASIC\SODIUM PHOSPHATE, MONOBASIC) [Concomitant]
     Active Substance: SODIUM PHOSPHATE, DIBASIC\SODIUM PHOSPHATE, MONOBASIC
  48. Isosorbide nitrate injection [Concomitant]
  49. METHOTREXATE [Concomitant]
     Active Substance: METHOTREXATE

REACTIONS (3)
  - Chronic kidney disease [Recovering/Resolving]
  - Electrolyte imbalance [Recovered/Resolved]
  - Weight decreased [Not Recovered/Not Resolved]

NARRATIVE: CASE EVENT DATE: 20241019
